FAERS Safety Report 8596057 (Version 2)
Quarter: 2012Q4

REPORT INFORMATION
  Report Type: 
  Country: US (occurrence: US)
  Receive Date: 20120605
  Receipt Date: 20121205
  Transmission Date: 20130627
  Serious: Yes (Disabling)
  Sender: FDA-Public Use
  Company Number: US-US-EMD SERONO, INC.-7135675

PATIENT
  Sex: Male
  Weight: 82 kg

DRUGS (2)
  1. REBIF [Suspect]
     Indication: MULTIPLE SCLEROSIS
     Route: 058
     Dates: start: 20050113
  2. REBIF [Suspect]
     Route: 058

REACTIONS (4)
  - Blindness [Not Recovered/Not Resolved]
  - Memory impairment [Unknown]
  - Injection site induration [Unknown]
  - Inappropriate schedule of drug administration [Unknown]
